FAERS Safety Report 7080597-6 (Version None)
Quarter: 2010Q4

REPORT INFORMATION
  Report Type: 
  Country: None (occurrence: None)
  Receive Date: 20101025
  Receipt Date: 20101020
  Transmission Date: 20110411
  Serious: Yes (Other)
  Sender: FDA-Public Use
  Company Number: A0887775A

PATIENT
  Age: 53 Year
  Sex: Female

DRUGS (1)
  1. SODIUM FLUORIDE + POTASSIUM NITRATE (FORMULATION UNKNOWN) (SODIUM FLUO [Suspect]
     Indication: SENSITIVITY OF TEETH
     Dates: start: 20101019

REACTIONS (4)
  - AGEUSIA [None]
  - ANOSMIA [None]
  - DYSPHONIA [None]
  - SINUS CONGESTION [None]
